FAERS Safety Report 8430406-5 (Version None)
Quarter: 2012Q2

REPORT INFORMATION
  Report Type: 
  Country: None (occurrence: None)
  Receive Date: 20120323
  Receipt Date: 20110829
  Transmission Date: 20120825
  Serious: Yes (Hospitalization)
  Sender: FDA-Public Use
  Company Number: 163-21880-11073066

PATIENT
  Age: 90 Year
  Sex: Male

DRUGS (11)
  1. SYNTHROID [Concomitant]
  2. SERTRALINE HYDROCHLORIDE [Concomitant]
  3. VITAMIN C (ASCORBIN ACID) [Concomitant]
  4. VITAMIN D [Concomitant]
  5. REVLIMID [Suspect]
     Indication: CHRONIC LYMPHOCYTIC LEUKAEMIA
     Dosage: 5 MG, DAILY X 21 DAYS, 7 DAYS OFF, PO
     Route: 048
     Dates: start: 20110629, end: 20110701
  6. REVLIMID [Suspect]
     Indication: CHRONIC LYMPHOCYTIC LEUKAEMIA
     Dosage: 5 MG, DAILY X 21 DAYS, 7 DAYS OFF, PO
     Route: 048
     Dates: start: 20110101
  7. DILTIAZEM [Concomitant]
  8. CALCIUM CARBONATE [Concomitant]
  9. LANSOPRAZOLE [Concomitant]
  10. CENTRUM (CENTRUM) [Concomitant]
  11. VITAMIN B12 [Concomitant]

REACTIONS (4)
  - SEPTIC SHOCK [None]
  - NEUTROPENIA [None]
  - HYPOTENSION [None]
  - PLATELET COUNT DECREASED [None]
